FAERS Safety Report 14681092 (Version 4)
Quarter: 2018Q4

REPORT INFORMATION
  Report Type: Report from Study
  Country: TW (occurrence: TW)
  Receive Date: 20180326
  Receipt Date: 20181126
  Transmission Date: 20190204
  Serious: Yes (Death, Hospitalization, Other)
  Sender: FDA-Public Use
  Company Number: TW-INCYTE CORPORATION-2018IN002779

PATIENT

DRUGS (2)
  1. JAKAVI [Suspect]
     Active Substance: RUXOLITINIB
     Indication: MYELOFIBROSIS
     Dosage: 15 MG, BID
     Route: 048
  2. ULTRACET [Concomitant]
     Active Substance: ACETAMINOPHEN\TRAMADOL HYDROCHLORIDE
     Indication: PRODUCT USED FOR UNKNOWN INDICATION
     Dosage: 0.5 DF, BID
     Route: 065

REACTIONS (8)
  - Pleural effusion [Unknown]
  - Red blood cell count decreased [Fatal]
  - Off label use [Unknown]
  - Haemoglobin decreased [Unknown]
  - Infectious pleural effusion [Unknown]
  - Platelet count decreased [Fatal]
  - Thrombocytopenia [Unknown]
  - Infarction [Unknown]

NARRATIVE: CASE EVENT DATE: 201805
